FAERS Safety Report 5242016-1 (Version None)
Quarter: 2007Q1

REPORT INFORMATION
  Report Type: 
  Country: None (occurrence: None)
  Receive Date: 20070212
  Receipt Date: 20070201
  Transmission Date: 20070707
  Serious: Yes (Other)
  Sender: FDA-Public Use
  Company Number: 235760

PATIENT
  Age: 85 Year
  Sex: Female

DRUGS (10)
  1. LUCENTIS [Suspect]
     Indication: MACULAR DEGENERATION
     Dosage: 0.5 MG, 1/MONTH, INTRAVITREAL
     Dates: start: 20061115
  2. AVAPRO [Concomitant]
  3. LASIX [Concomitant]
  4. STARLIX [Concomitant]
  5. XANAX [Concomitant]
  6. PREDNISONE TAB [Concomitant]
  7. ALBUTEROL (ALBUTEROL/ALBUTEROL SULFATE) [Concomitant]
  8. XOPENEX [Concomitant]
  9. SPIRIVA [Concomitant]
  10. FLOVENT [Concomitant]

REACTIONS (2)
  - CHRONIC OBSTRUCTIVE PULMONARY DISEASE [None]
  - CONDITION AGGRAVATED [None]
